FAERS Safety Report 15547058 (Version 3)
Quarter: 2020Q2

REPORT INFORMATION
  Report Type: Spontaneous
  Country: US (occurrence: US)
  Receive Date: 20181024
  Receipt Date: 20200623
  Transmission Date: 20200713
  Serious: Yes (Hospitalization, Other)
  Sender: FDA-Public Use
  Company Number: US-BRISTOL-MYERS SQUIBB COMPANY-BMS-2018-098664

PATIENT
  Age: 89 Year
  Sex: Female

DRUGS (1)
  1. NIVOLUMAB [Suspect]
     Active Substance: NIVOLUMAB
     Indication: TRANSITIONAL CELL CARCINOMA
     Dosage: 6 MG/KG, Q4WK
     Route: 065

REACTIONS (3)
  - Cold type haemolytic anaemia [Recovered/Resolved]
  - Intentional product use issue [Unknown]
  - Off label use [Unknown]
